FAERS Safety Report 13516003 (Version 1)
Quarter: 2017Q2

REPORT INFORMATION
  Report Type: Spontaneous
  Country: US (occurrence: US)
  Receive Date: 20170505
  Receipt Date: 20170505
  Transmission Date: 20170830
  Serious: Yes (Other)
  Sender: FDA-Public Use
  Company Number: US-CHARTWELL PHARMA-2020238

PATIENT
  Age: 39 Year
  Sex: Female

DRUGS (4)
  1. PANTOPRAZOLE SODIUM. [Concomitant]
     Active Substance: PANTOPRAZOLE SODIUM
  2. LEVONORGESTREL AND ETHINYL ESTRADIOL [Concomitant]
     Active Substance: ETHINYL ESTRADIOL\LEVONORGESTREL
  3. DOXYCYCLINE HYCLATE. [Suspect]
     Active Substance: DOXYCYCLINE HYCLATE
     Indication: HELICOBACTER INFECTION
  4. METRONIDAZOLE. [Concomitant]
     Active Substance: METRONIDAZOLE

REACTIONS (6)
  - Erosive duodenitis [Recovered/Resolved]
  - Gastrointestinal injury [Recovered/Resolved]
  - Polyp [Recovered/Resolved]
  - Mucosal necrosis [Recovered/Resolved]
  - Ulcer [Recovered/Resolved]
  - Drug ineffective [Recovered/Resolved]
